FAERS Safety Report 18064707 (Version 1)
Quarter: 2020Q3

REPORT INFORMATION
  Report Type: Spontaneous
  Country: US (occurrence: US)
  Receive Date: 20200723
  Receipt Date: 20200723
  Transmission Date: 20201103
  Serious: No
  Sender: FDA-Public Use
  Company Number: None

PATIENT
  Age: 63 Year
  Weight: 57.6 kg

DRUGS (8)
  1. ANTIHISTAMINES [Concomitant]
     Active Substance: ANTIHISTAMINES NOS
  2. PSEUDOEPHEDRINE. [Concomitant]
     Active Substance: PSEUDOEPHEDRINE HYDROCHLORIDE
  3. GABAPENTIN. [Concomitant]
     Active Substance: GABAPENTIN
  4. HYDROXYZINE [Concomitant]
     Active Substance: HYDROXYZINE HYDROCHLORIDE
  5. NORTRIPTYLINE [Suspect]
     Active Substance: NORTRIPTYLINE
     Indication: SLEEP DISORDER
     Route: 048
     Dates: start: 20200717, end: 20200719
  6. NASAL SPRAY [Concomitant]
     Active Substance: UNSPECIFIED INGREDIENT
  7. LORAZEPAM. [Concomitant]
     Active Substance: LORAZEPAM
  8. ZOLPIDEM [Concomitant]
     Active Substance: ZOLPIDEM TARTRATE

REACTIONS (5)
  - Swelling [None]
  - Rash [None]
  - Diarrhoea [None]
  - Rhinorrhoea [None]
  - Paranoia [None]

NARRATIVE: CASE EVENT DATE: 20200717
